FAERS Safety Report 10215363 (Version 1)
Quarter: 2014Q2

REPORT INFORMATION
  Report Type: Spontaneous
  Country: DE (occurrence: DE)
  Receive Date: 20140604
  Receipt Date: 20140604
  Transmission Date: 20141212
  Serious: Yes (Hospitalization, Other)
  Sender: FDA-Public Use
  Company Number: DE-DRREDDYS-GER/GER/14/0040724

PATIENT
  Age: 26 Year
  Sex: Male

DRUGS (6)
  1. FLUOXETINE [Suspect]
     Indication: PRODUCT USED FOR UNKNOWN INDICATION
     Route: 048
     Dates: start: 20120427, end: 20120501
  2. FLUOXETINE [Suspect]
     Route: 048
     Dates: start: 20120502, end: 20120509
  3. FLUOXETINE [Suspect]
     Route: 048
     Dates: start: 20120510, end: 20120516
  4. FLUOXETINE [Suspect]
     Route: 048
     Dates: start: 20120517, end: 20120523
  5. FLUOXETINE [Suspect]
     Route: 048
     Dates: start: 20120524, end: 20120528
  6. VALPROIC ACID [Concomitant]
     Indication: PRODUCT USED FOR UNKNOWN INDICATION
     Route: 048

REACTIONS (3)
  - Erectile dysfunction [Recovered/Resolved]
  - Restlessness [Unknown]
  - Sleep disorder [Unknown]
